FAERS Safety Report 7918148-3 (Version None)
Quarter: 2011Q4

REPORT INFORMATION
  Report Type: 
  Country: None (occurrence: None)
  Receive Date: 20111116
  Receipt Date: 20111110
  Transmission Date: 20120403
  Serious: Yes (Hospitalization)
  Sender: FDA-Public Use
  Company Number: US-B.I. PHARMACEUTICALS,INC./RIDGEFIELD-2011-BP-23752BP

PATIENT
  Sex: Male

DRUGS (6)
  1. ENALAPRIL MALEATE [Concomitant]
  2. NIFEDIPINE [Concomitant]
  3. PRADAXA [Suspect]
     Indication: ATRIAL FIBRILLATION
     Dosage: 300 MG
     Dates: start: 20110131, end: 20110216
  4. ETODOLAC [Concomitant]
  5. LOVENOX [Concomitant]
  6. ATENOLOL [Concomitant]

REACTIONS (2)
  - PULMONARY EMBOLISM [None]
  - DEEP VEIN THROMBOSIS [None]
